FAERS Safety Report 12645067 (Version 2)
Quarter: 2016Q3

REPORT INFORMATION
  Report Type: Spontaneous
  Country: US (occurrence: US)
  Receive Date: 20160811
  Receipt Date: 20160921
  Transmission Date: 20161109
  Serious: Yes (Hospitalization)
  Sender: FDA-Public Use
  Company Number: US-JNJFOC-20160803774

PATIENT
  Age: 24 Year
  Sex: Male
  Weight: 72.58 kg

DRUGS (3)
  1. PUMPKIN OIL [Concomitant]
     Indication: NUTRITIONAL SUPPLEMENTATION
     Route: 048
  2. INVEGA [Suspect]
     Active Substance: PALIPERIDONE
     Indication: PRODUCT USED FOR UNKNOWN INDICATION
     Route: 048
     Dates: start: 201506, end: 201510
  3. FLAXSEED [Concomitant]
     Active Substance: FLAX SEED
     Indication: NUTRITIONAL SUPPLEMENTATION
     Route: 048

REACTIONS (2)
  - Aggression [Unknown]
  - Therapy cessation [Unknown]

NARRATIVE: CASE EVENT DATE: 201510
